FAERS Safety Report 20099173 (Version 2)
Quarter: 2021Q4

REPORT INFORMATION
  Report Type: Spontaneous
  Country: None (occurrence: US)
  Receive Date: 20211122
  Receipt Date: 20211209
  Transmission Date: 20220303
  Serious: Yes (Other)
  Sender: FDA-Public Use
  Company Number: US-Amphastar Pharmaceuticals, Inc.-2122161

PATIENT
  Age: 61 Year
  Sex: Female
  Weight: 83.636 kg

DRUGS (2)
  1. GLUCAGON [Suspect]
     Active Substance: GLUCAGON
     Indication: Blood glucose decreased
  2. DEVICE [Suspect]
     Active Substance: DEVICE

REACTIONS (1)
  - Drug dose omission by device [Recovered/Resolved]

NARRATIVE: CASE EVENT DATE: 20211107
